FAERS Safety Report 5978138-7 (Version None)
Quarter: 2008Q4

REPORT INFORMATION
  Report Type: 
  Country: None (occurrence: None)
  Receive Date: 20081126
  Receipt Date: 20081118
  Transmission Date: 20090506
  Serious: Yes (Hospitalization, Other)
  Sender: FDA-Public Use
  Company Number: 2008SP023538

PATIENT
  Age: 56 Year
  Sex: Female

DRUGS (3)
  1. PEG-INTRON [Suspect]
     Indication: HEPATITIS C
     Dosage: SC
     Route: 058
     Dates: start: 20071202
  2. RIBAVIRIN [Suspect]
     Indication: HEPATITIS C
     Dosage: PO
     Route: 048
     Dates: start: 20081202
  3. RIBONUCLLEIC ACID [Concomitant]

REACTIONS (5)
  - ASTHMA [None]
  - INCISION SITE PAIN [None]
  - PAIN [None]
  - UTERINE CYST [None]
  - UTERINE ENLARGEMENT [None]
